FAERS Safety Report 6359365-6 (Version None)
Quarter: 2009Q3

REPORT INFORMATION
  Report Type: 
  Country: None (occurrence: None)
  Receive Date: 20090917
  Receipt Date: 20090915
  Transmission Date: 20100115
  Serious: Yes (Hospitalization)
  Sender: FDA-Public Use
  Company Number: DE-BRISTOL-MYERS SQUIBB COMPANY-14684856

PATIENT
  Age: 58 Year
  Sex: Female
  Weight: 51 kg

DRUGS (2)
  1. CISPLATIN [Suspect]
     Indication: NON-SMALL CELL LUNG CANCER
     Dosage: RECENT INF: 08JUN09
     Route: 065
     Dates: start: 20090608
  2. ETOPOSIDE [Suspect]
     Indication: NON-SMALL CELL LUNG CANCER
     Dosage: LAST DOSE: 12JUN09
     Route: 065
     Dates: start: 20090608

REACTIONS (2)
  - BRONCHOPNEUMONIA [None]
  - NAUSEA [None]
